FAERS Safety Report 5989256-1 (Version None)
Quarter: 2008Q4

REPORT INFORMATION
  Report Type: 
  Country: None (occurrence: None)
  Receive Date: 20081205
  Receipt Date: 20081121
  Transmission Date: 20090506
  Serious: Yes (Life-Threatening, Hospitalization)
  Sender: FDA-Public Use
  Company Number: 000684

PATIENT
  Age: 61 Year
  Sex: Male

DRUGS (8)
  1. BUSULFEX [Suspect]
     Indication: STEM CELL TRANSPLANT
     Dosage: 27 ML, INTRAVENOUS; 9 ML, QID; INTRAVENOUS; 9 ML, QD; INTRAVENOUS
     Route: 042
     Dates: start: 20070519, end: 20070519
  2. BUSULFEX [Suspect]
     Indication: STEM CELL TRANSPLANT
     Dosage: 27 ML, INTRAVENOUS; 9 ML, QID; INTRAVENOUS; 9 ML, QD; INTRAVENOUS
     Route: 042
     Dates: start: 20070520, end: 20070520
  3. BUSULFEX [Suspect]
     Indication: STEM CELL TRANSPLANT
     Dosage: 27 ML, INTRAVENOUS; 9 ML, QID; INTRAVENOUS; 9 ML, QD; INTRAVENOUS
     Route: 042
     Dates: start: 20070521, end: 20070521
  4. FLUDARABINE PHOSPHATE [Concomitant]
  5. VALPROATE SODIUM [Concomitant]
  6. LENOGRASTIM (LENOGRASTIM) [Concomitant]
  7. METHOTREXATE [Concomitant]
  8. CYCLOSPORINE [Concomitant]

REACTIONS (15)
  - ABDOMINAL DISTENSION [None]
  - ACUTE GRAFT VERSUS HOST DISEASE [None]
  - ACUTE GRAFT VERSUS HOST DISEASE IN SKIN [None]
  - ANOREXIA [None]
  - CELLULITIS [None]
  - DIARRHOEA [None]
  - ESCHERICHIA INFECTION [None]
  - ESCHERICHIA SEPSIS [None]
  - ILEUS [None]
  - MALAISE [None]
  - NAUSEA [None]
  - PNEUMONIA [None]
  - SEPTIC SHOCK [None]
  - STEM CELL TRANSPLANT [None]
  - STOMATITIS [None]
